FAERS Safety Report 11269028 (Version 1)
Quarter: 2015Q3

REPORT INFORMATION
  Report Type: Spontaneous
  Country: US (occurrence: US)
  Receive Date: 20150714
  Receipt Date: 20150714
  Transmission Date: 20151125
  Serious: Yes (Other)
  Sender: FDA-Public Use
  Company Number: PHEH2014US018749

PATIENT
  Sex: Female

DRUGS (4)
  1. MAGNESIUM [Concomitant]
     Active Substance: MAGNESIUM
     Dosage: UNK UKN, UNK
  2. DIOVAN [Suspect]
     Active Substance: VALSARTAN
     Dosage: 160 MG, UNK
  3. CALCIUM [Concomitant]
     Active Substance: CALCIUM
     Dosage: UNK UKN, UNK
  4. BIOTIN [Concomitant]
     Active Substance: BIOTIN
     Dosage: UNK UKN, UNK

REACTIONS (13)
  - Glucose tolerance impaired [Unknown]
  - Paraesthesia [Unknown]
  - Hypoaesthesia [Unknown]
  - Back pain [Unknown]
  - Hypertension [Unknown]
  - General physical condition abnormal [Unknown]
  - Dyspnoea [Unknown]
  - Drug ineffective [Unknown]
  - Thyroid disorder [Unknown]
  - Burning sensation [Unknown]
  - Diarrhoea [Unknown]
  - Arthralgia [Unknown]
  - Pruritus [Unknown]
